FAERS Safety Report 5050626-X (Version None)
Quarter: 2006Q3

REPORT INFORMATION
  Report Type: 
  Country: None (occurrence: None)
  Receive Date: 20060710
  Receipt Date: 20060704
  Transmission Date: 20061208
  Serious: Yes (Hospitalization)
  Sender: FDA-Public Use
  Company Number: OMPQ-UK-0607S-0837

PATIENT
  Age: 39 Year
  Sex: Female

DRUGS (1)
  1. OMNIPAQUE 140 [Suspect]
     Indication: BILE DUCT OBSTRUCTION
     Dosage: 100 ML SINGLE DOSE IV
     Route: 042
     Dates: start: 20051117, end: 20051117

REACTIONS (2)
  - COMPARTMENT SYNDROME [None]
  - EXTRAVASATION [None]
